FAERS Safety Report 9293618 (Version 1)
Quarter: 2013Q2

REPORT INFORMATION
  Report Type: Spontaneous
  Country: NZ (occurrence: NZ)
  Receive Date: 20130516
  Receipt Date: 20130516
  Transmission Date: 20140414
  Serious: Yes (Other)
  Sender: FDA-Public Use
  Company Number: NZ-ELI_LILLY_AND_COMPANY-NZ201303001646

PATIENT
  Sex: Male

DRUGS (1)
  1. ZYPREXA RELPREVV [Suspect]
     Dosage: 300 MG, EVERY 4 WEEKS

REACTIONS (7)
  - Restlessness [Unknown]
  - Gait disturbance [Unknown]
  - Dyspnoea [Unknown]
  - Dysarthria [Unknown]
  - Disorientation [Unknown]
  - Sedation [Recovering/Resolving]
  - Delirium [Unknown]
